FAERS Safety Report 5286708-7 (Version None)
Quarter: 2007Q1

REPORT INFORMATION
  Report Type: 
  Country: None (occurrence: None)
  Receive Date: 20070116
  Receipt Date: 20061116
  Transmission Date: 20070707
  Serious: No
  Sender: FDA-Public Use
  Company Number: 2006SP004081

PATIENT
  Age: 74 Year
  Sex: Female
  Weight: 56.6996 kg

DRUGS (6)
  1. LUNESTA [Suspect]
     Indication: INSOMNIA
     Dosage: 2 MG;1X;ORAL
     Route: 048
     Dates: start: 20061115, end: 20061115
  2. AMBIEN [Concomitant]
  3. ATENOLOL [Concomitant]
  4. PANTOPRAZOLE [Concomitant]
  5. SYNTHROID [Concomitant]
  6. DICYCLOMINE [Concomitant]

REACTIONS (6)
  - DYSGEUSIA [None]
  - FEELING HOT AND COLD [None]
  - HOT FLUSH [None]
  - INSOMNIA [None]
  - TINNITUS [None]
  - TREMOR [None]
